FAERS Safety Report 26133149 (Version 1)
Quarter: 2025Q4

REPORT INFORMATION
  Report Type: Report from Study
  Country: US (occurrence: US)
  Receive Date: 20251209
  Receipt Date: 20251209
  Transmission Date: 20260118
  Serious: No
  Sender: ASTELLAS
  Company Number: US-ASTELLAS-2025-AER-066954

PATIENT
  Age: 54 Year
  Sex: Female

DRUGS (1)
  1. VEOZAH [Suspect]
     Active Substance: FEZOLINETANT
     Indication: Menopausal symptoms
     Route: 048
     Dates: end: 20251129

REACTIONS (2)
  - Alanine aminotransferase decreased [Unknown]
  - Back pain [Unknown]

NARRATIVE: CASE EVENT DATE: 20250101
